FAERS Safety Report 24613972 (Version 2)
Quarter: 2025Q4

REPORT INFORMATION
  Report Type: Spontaneous
  Country: JP (occurrence: JP)
  Receive Date: 20241113
  Receipt Date: 20251005
  Transmission Date: 20260117
  Serious: Yes (Hospitalization, Other)
  Sender: BAXTER
  Company Number: JP-BAXTER-2024BAX027336

PATIENT
  Sex: Female
  Weight: 42.1 kg

DRUGS (3)
  1. DOXORUBICIN [Suspect]
     Active Substance: DOXORUBICIN
     Indication: Serous cystadenocarcinoma ovary
     Dosage: SIX CYCLES OF INDUCTION THERAPY WITH PEGYLATED LIPOSOMAL DOXORUBICIN (PLD), A CONSOLIDATION THERAPY
     Route: 065
  2. DOXORUBICIN [Suspect]
     Active Substance: DOXORUBICIN
     Indication: Recurrent cancer
     Dosage: PEGYLATED LIPOSOMAL DOXORUBICIN (DOXIL 20MG), (40 OR 50 MG/M2 PER INFUSION INTRAVENOUS (VIA A CENTRA
     Route: 041
     Dates: start: 20161021, end: 20220311
  3. DOXORUBICIN [Suspect]
     Active Substance: DOXORUBICIN
     Indication: Ovarian epithelial cancer

REACTIONS (9)
  - Renal-limited thrombotic microangiopathy [Recovering/Resolving]
  - Hypertension [Recovered/Resolved]
  - Proteinuria [Not Recovered/Not Resolved]
  - Renal impairment [Recovered/Resolved]
  - Oedema peripheral [Unknown]
  - Kidney fibrosis [Unknown]
  - Renal atrophy [Unknown]
  - Thrombocytopenia [Unknown]
  - Chronic kidney disease [Unknown]

NARRATIVE: CASE EVENT DATE: 20211101
